FAERS Safety Report 8114684-8 (Version None)
Quarter: 2012Q1

REPORT INFORMATION
  Report Type: 
  Country: None (occurrence: None)
  Receive Date: 20120206
  Receipt Date: 20120130
  Transmission Date: 20120608
  Serious: Yes (Hospitalization)
  Sender: FDA-Public Use
  Company Number: US-ACCORD-012251

PATIENT
  Age: 62 Year
  Sex: Male

DRUGS (5)
  1. PREDNISONE [Concomitant]
     Indication: RENAL TRANSPLANT
  2. TACROLIMUS [Suspect]
     Indication: RENAL TRANSPLANT
  3. DILTIAZEM HCL [Suspect]
  4. ENALAPRIL MALEATE [Concomitant]
     Dosage: ENALAPRIL 2.5 MG DAILY
  5. RANOLAZINE [Suspect]

REACTIONS (6)
  - BRADYCARDIA [None]
  - DECREASED APPETITE [None]
  - TREMOR [None]
  - RENAL FAILURE ACUTE [None]
  - DRUG INTERACTION [None]
  - FATIGUE [None]
